FAERS Safety Report 22251593 (Version 2)
Quarter: 2023Q2

REPORT INFORMATION
  Report Type: Report from Study
  Country: US (occurrence: US)
  Receive Date: 20230425
  Receipt Date: 20230428
  Transmission Date: 20230721
  Serious: No
  Sender: FDA-Public Use
  Company Number: US-002147023-NVSC2023US093285

PATIENT
  Sex: Female
  Weight: 90.72 kg

DRUGS (5)
  1. BETAMETHASONE [Suspect]
     Active Substance: BETAMETHASONE
     Indication: Psoriasis
     Dosage: 0.5 %
     Route: 065
  2. TACROLIMUS [Suspect]
     Active Substance: TACROLIMUS
     Indication: Psoriasis
     Dosage: 0.1 %
     Route: 065
  3. CIMETIDINE [Suspect]
     Active Substance: CIMETIDINE
     Indication: Psoriasis
     Route: 048
  4. DOXYCYCLINE [Suspect]
     Active Substance: DOXYCYCLINE
     Indication: Psoriasis
     Dosage: 100 MG
     Route: 065
  5. FEXOFENADINE [Suspect]
     Active Substance: FEXOFENADINE HYDROCHLORIDE
     Indication: Psoriasis
     Dosage: 180 MG, QD
     Route: 048

REACTIONS (4)
  - Cutaneous horn of eyelid [Unknown]
  - Pruritus [Unknown]
  - Rash erythematous [Unknown]
  - Treatment failure [Unknown]
